FAERS Safety Report 16412633 (Version 1)
Quarter: 2019Q2

REPORT INFORMATION
  Report Type: Spontaneous
  Country: ES (occurrence: ES)
  Receive Date: 20190611
  Receipt Date: 20190611
  Transmission Date: 20190711
  Serious: Yes (Life-Threatening, Hospitalization)
  Sender: FDA-Public Use
  Company Number: ES-TEVA-2019-ES-1059891

PATIENT
  Age: 3 Year
  Sex: Female

DRUGS (11)
  1. ONCOTIOTEPA (THIOTEPA) [Interacting]
     Active Substance: THIOTEPA
     Indication: BONE MARROW CONDITIONING REGIMEN
     Dosage: 5 MG/KG DAILY;
     Route: 042
     Dates: start: 20160608, end: 20160609
  2. BUSULFANO (76A) [Interacting]
     Active Substance: BUSULFAN
     Indication: BONE MARROW CONDITIONING REGIMEN
     Dosage: 4.8 MG/KG DAILY;
     Route: 042
     Dates: start: 20160608, end: 20160610
  3. FLUDARABINE [Interacting]
     Active Substance: FLUDARABINE PHOSPHATE
     Indication: BONE MARROW CONDITIONING REGIMEN
     Dosage: 50 MG/M2 DAILY;
     Route: 042
     Dates: start: 20160608, end: 20160610
  4. METOTREXATO (418A) [Interacting]
     Active Substance: METHOTREXATE
     Indication: STEM CELL TRANSPLANT
     Dosage: SHORT GUIDELINE 4 DOSES
     Route: 065
     Dates: start: 20160616
  5. ETOPOSIDO (518A) [Suspect]
     Active Substance: ETOPOSIDE
     Indication: ACUTE MYELOID LEUKAEMIA
     Dosage: SHOP-LAM 2007
     Route: 042
     Dates: start: 20160201, end: 20160401
  6. CICLOSPORINA (406A) [Interacting]
     Active Substance: CYCLOSPORINE
     Indication: STEM CELL TRANSPLANT
     Route: 042
     Dates: start: 20160614, end: 20161014
  7. MICOFENOLATO DE MOFETILO (7330LM) [Interacting]
     Active Substance: MYCOPHENOLATE MOFETIL
     Indication: STEM CELL TRANSPLANT
     Route: 065
     Dates: start: 20160724
  8. TIMOGLOBULINA [Interacting]
     Active Substance: LAPINE T-LYMPHOCYTE IMMUNE GLOBULIN
     Indication: BONE MARROW CONDITIONING REGIMEN
     Dosage: 2 MG/KG DAILY;
     Route: 042
     Dates: start: 20160608, end: 20160610
  9. MITOXANTRONA (2415A) [Interacting]
     Active Substance: MITOXANTRONE HYDROCHLORIDE
     Indication: ACUTE MYELOID LEUKAEMIA
     Dosage: SHOP-LAM 2007
     Route: 042
     Dates: start: 20160401
  10. ARABINOSIDO DE CITOSINA (CYTARABINE) [Interacting]
     Active Substance: CYTARABINE
     Indication: ACUTE MYELOID LEUKAEMIA
     Dosage: (SHOP-LAM 2007)
     Route: 042
     Dates: start: 20160129, end: 201605
  11. IDARRUBICINA [Interacting]
     Active Substance: IDARUBICIN
     Indication: ACUTE MYELOID LEUKAEMIA
     Dosage: (SHOP-LAM 2007)
     Route: 042
     Dates: start: 20160201, end: 20160401

REACTIONS (2)
  - Post transplant lymphoproliferative disorder [Recovered/Resolved with Sequelae]
  - Drug interaction [Unknown]

NARRATIVE: CASE EVENT DATE: 20160923
